FAERS Safety Report 8129353-8 (Version None)
Quarter: 2012Q1

REPORT INFORMATION
  Report Type: 
  Country: None (occurrence: None)
  Receive Date: 20120210
  Receipt Date: 20120207
  Transmission Date: 20120608
  Serious: Yes (Hospitalization, Other)
  Sender: FDA-Public Use
  Company Number: US-MERCK-1107USA01812

PATIENT
  Age: 59 Year
  Sex: Female
  Weight: 70 kg

DRUGS (2)
  1. FOSAMAX [Suspect]
     Indication: OSTEOPOROSIS
     Route: 048
     Dates: start: 20010101, end: 20100101
  2. FOSAMAX [Suspect]
     Route: 048
     Dates: start: 20100101

REACTIONS (39)
  - NEPHROLITHIASIS [None]
  - BRONCHITIS [None]
  - CARPAL TUNNEL SYNDROME [None]
  - HYPERTENSION [None]
  - HAEMATURIA [None]
  - WEIGHT INCREASED [None]
  - SCIATICA [None]
  - RENAL CYST [None]
  - BLOOD CHOLESTEROL INCREASED [None]
  - BALANCE DISORDER [None]
  - BURSITIS [None]
  - RENAL ATROPHY [None]
  - CHRONIC SINUSITIS [None]
  - ANXIETY [None]
  - BLADDER MASS [None]
  - FEMUR FRACTURE [None]
  - FALL [None]
  - CALCULUS URETERIC [None]
  - LIGAMENT SPRAIN [None]
  - IMPAIRED HEALING [None]
  - SINUS CONGESTION [None]
  - METATARSALGIA [None]
  - CONTUSION [None]
  - MERALGIA PARAESTHETICA [None]
  - HYPERLIPIDAEMIA [None]
  - HYDRONEPHROSIS [None]
  - HAEMATOMA [None]
  - VISION BLURRED [None]
  - UTERINE DISORDER [None]
  - PAIN IN EXTREMITY [None]
  - INTERVERTEBRAL DISC DEGENERATION [None]
  - BLADDER DISORDER [None]
  - STRESS URINARY INCONTINENCE [None]
  - INTERVERTEBRAL DISC PROTRUSION [None]
  - OSTEOPENIA [None]
  - NOCTURIA [None]
  - MUSCULOSKELETAL DISORDER [None]
  - FLANK PAIN [None]
  - COUGH [None]
